FAERS Safety Report 7006641-X (Version None)
Quarter: 2010Q3

REPORT INFORMATION
  Report Type: 
  Country: None (occurrence: None)
  Receive Date: 20100921
  Receipt Date: 20100921
  Transmission Date: 20110219
  Serious: Yes (Other)
  Sender: FDA-Public Use
  Company Number: None

PATIENT
  Age: 43 Year
  Sex: Female
  Weight: 99.7913 kg

DRUGS (1)
  1. PREVACID [Suspect]
     Dosage: 1 CAPSUL DAILY PO
     Route: 048
     Dates: start: 20080301, end: 20100901

REACTIONS (3)
  - BURNING SENSATION [None]
  - RASH [None]
  - SCAB [None]
